FAERS Safety Report 7725408-8 (Version None)
Quarter: 2011Q3

REPORT INFORMATION
  Report Type: 
  Country: None (occurrence: None)
  Receive Date: 20110902
  Receipt Date: 20110830
  Transmission Date: 20111222
  Serious: No
  Sender: FDA-Public Use
  Company Number: US-PFIZER INC-2011164916

PATIENT
  Sex: Female
  Weight: 54.4 kg

DRUGS (8)
  1. ASCORBIC ACID [Concomitant]
     Dosage: 500 MG, DAILY
  2. DEPO-TESTOSTERONE [Suspect]
     Indication: OFF LABEL USE
     Dosage: 200 MG, Q MONTH
     Route: 030
     Dates: start: 20110520, end: 20110520
  3. ALLEGRA [Concomitant]
     Dosage: 180 MG, DAILY
  4. SUDAFED 12 HOUR [Concomitant]
     Dosage: 120 MG, 2X/DAY
  5. MULTI-VITAMINS [Concomitant]
     Dosage: UNK
  6. ZANTAC [Concomitant]
     Dosage: 300 MG, 2X/DAY
  7. DEPO-TESTOSTERONE [Suspect]
     Indication: BLOOD TESTOSTERONE DECREASED
  8. VITAMIN E [Concomitant]
     Dosage: 400 IU, DAILY

REACTIONS (4)
  - ALOPECIA [None]
  - ACNE [None]
  - SEBORRHOEA [None]
  - DYSPHONIA [None]
